FAERS Safety Report 26100389 (Version 2)
Quarter: 2025Q4

REPORT INFORMATION
  Report Type: Spontaneous
  Country: US (occurrence: US)
  Receive Date: 20251128
  Receipt Date: 20251211
  Transmission Date: 20260117
  Serious: Yes (Life-Threatening, Hospitalization, Other)
  Sender: ALKEM
  Company Number: US-ALKEM LABORATORIES LIMITED-US-ALKEM-2025-12770

PATIENT
  Age: 60 Year
  Sex: Female
  Weight: 38 kg

DRUGS (2)
  1. LIDOCAINE [Suspect]
     Active Substance: LIDOCAINE
     Indication: Postoperative analgesia
     Dosage: 50 MILLIGRAM
     Route: 042
  2. BUPIVACAINE HYDROCHLORIDE [Suspect]
     Active Substance: BUPIVACAINE HYDROCHLORIDE
     Indication: Postoperative analgesia
     Dosage: UNK (60 MILLILITER OF 0.25 PERCENT (150 MILLIGRAM) OF PLAIN BUPIVACAINE HYDROCHLORIDE (HCL) ADMIXED
     Route: 065

REACTIONS (4)
  - Generalised tonic-clonic seizure [Recovered/Resolved]
  - Local anaesthetic systemic toxicity [Recovered/Resolved]
  - Hypotension [Recovered/Resolved]
  - Overdose [Unknown]
